FAERS Safety Report 12076300 (Version 1)
Quarter: 2016Q1

REPORT INFORMATION
  Report Type: Spontaneous
  Country: US (occurrence: US)
  Receive Date: 20160215
  Receipt Date: 20160215
  Transmission Date: 20160526
  Serious: Yes (Hospitalization, Other)
  Sender: FDA-Public Use
  Company Number: US-BAUSCH-BL-2016-003509

PATIENT
  Age: 84 Year
  Sex: Female
  Weight: 57.07 kg

DRUGS (12)
  1. ATORVASTATIN CALCIUM; PLACE BO (CODE NOT BROKEN) [Suspect]
     Active Substance: ATORVASTATIN CALCIUM
     Indication: HIP FRACTURE
  2. ATIVAN [Suspect]
     Active Substance: LORAZEPAM
     Indication: ALCOHOL WITHDRAWAL SYNDROME
     Route: 048
     Dates: start: 20151028, end: 20151029
  3. AMBIEN [Concomitant]
     Active Substance: ZOLPIDEM TARTRATE
     Indication: SLEEP DISORDER
  4. LIBRIUM [Suspect]
     Active Substance: CHLORDIAZEPOXIDE HYDROCHLORIDE
     Indication: ALCOHOL WITHDRAWAL SYNDROME
     Route: 048
     Dates: start: 20151101, end: 20151102
  5. TRIAMCINOLONE [Concomitant]
     Active Substance: TRIAMCINOLONE
     Indication: PRURITUS
  6. DIGOXIN. [Concomitant]
     Active Substance: DIGOXIN
     Indication: ATRIAL FIBRILLATION
  7. LIDODERM [Concomitant]
     Active Substance: LIDOCAINE
     Indication: ANALGESIC THERAPY
  8. PREMARIN [Suspect]
     Active Substance: ESTROGENS, CONJUGATED
     Indication: PRODUCT USED FOR UNKNOWN INDICATION
     Route: 065
  9. ASPIRIN. [Concomitant]
     Active Substance: ASPIRIN
     Indication: THROMBOSIS PROPHYLAXIS
  10. VALIUM [Suspect]
     Active Substance: DIAZEPAM
     Indication: PRODUCT USED FOR UNKNOWN INDICATION
     Route: 065
     Dates: start: 20151028
  11. TRIAMCINOLONE [Concomitant]
     Active Substance: TRIAMCINOLONE
     Indication: ERYTHEMA
  12. ATORVASTATIN CALCIUM; PLACE BO (CODE NOT BROKEN) [Suspect]
     Active Substance: ATORVASTATIN CALCIUM

REACTIONS (6)
  - Delirium [Unknown]
  - Alcohol withdrawal syndrome [Unknown]
  - Staphylococcal sepsis [Unknown]
  - Hypertension [None]
  - Wound sepsis [None]
  - Procedural hypertension [Unknown]

NARRATIVE: CASE EVENT DATE: 20151028
